FAERS Safety Report 4462543-4 (Version None)
Quarter: 2004Q3

REPORT INFORMATION
  Report Type: 
  Country: None (occurrence: None)
  Receive Date: 20040928
  Receipt Date: 20040913
  Transmission Date: 20050211
  Serious: Yes (Disabling)
  Sender: FDA-Public Use
  Company Number: 2004062283

PATIENT
  Age: 63 Year
  Sex: Female

DRUGS (2)
  1. ZOLOFT [Suspect]
     Indication: DEPRESSION
     Dosage: 50 MG (50 MG, 1 IN 1 D), ORAL
     Route: 048
     Dates: start: 20040824
  2. PIPAMPERONE (PIPAMPERONE) [Concomitant]

REACTIONS (4)
  - ANAL SPHINCTER ATONY [None]
  - DIARRHOEA [None]
  - DRUG INEFFECTIVE [None]
  - FAECAL INCONTINENCE [None]
